FAERS Safety Report 4264807-6 (Version None)
Quarter: 2004Q1

REPORT INFORMATION
  Report Type: 
  Country: None (occurrence: None)
  Receive Date: 20040105
  Receipt Date: 20031230
  Transmission Date: 20041129
  Serious: Yes (Hospitalization)
  Sender: FDA-Public Use
  Company Number: 03-12-1525

PATIENT
  Age: 59 Year
  Sex: Male
  Weight: 67.1324 kg

DRUGS (5)
  1. CLOZAPINE [Suspect]
     Indication: SCHIZOPHRENIA
     Dosage: 12.5-2500MG QD ORAL
     Route: 048
     Dates: start: 20031007
  2. PERPHENAZINE [Concomitant]
  3. VALPROIC ACID [Concomitant]
  4. CLONAZEPAM [Concomitant]
  5. COGENTIN [Concomitant]

REACTIONS (3)
  - ASPIRATION [None]
  - LOSS OF CONSCIOUSNESS [None]
  - PNEUMONIA [None]
